FAERS Safety Report 14307538 (Version 1)
Quarter: 2017Q4

REPORT INFORMATION
  Report Type: Spontaneous
  Country: US (occurrence: US)
  Receive Date: 20171220
  Receipt Date: 20171220
  Transmission Date: 20180321
  Serious: Yes (Other)
  Sender: FDA-Public Use
  Company Number: US-APOTEX-2017AP022619

PATIENT
  Age: 13 Year
  Sex: Female

DRUGS (1)
  1. TOPIRAMATE. [Suspect]
     Active Substance: TOPIRAMATE
     Indication: TIC
     Dosage: 25 MG, PER DAY
     Route: 065

REACTIONS (2)
  - Mental impairment [Unknown]
  - Drug effect incomplete [Unknown]
